FAERS Safety Report 16378013 (Version 1)
Quarter: 2019Q2

REPORT INFORMATION
  Report Type: Spontaneous
  Country: US (occurrence: US)
  Receive Date: 20190531
  Receipt Date: 20190531
  Transmission Date: 20190711
  Serious: Yes (Hospitalization)
  Sender: FDA-Public Use
  Company Number: US-PFIZER INC-2019226707

PATIENT
  Age: 86 Year
  Sex: Female
  Weight: 77.11 kg

DRUGS (4)
  1. IBRANCE [Suspect]
     Active Substance: PALBOCICLIB
     Indication: BREAST CANCER
     Dosage: 100 MG, CYCLIC (100MG, 21DAYS ON AND 7 DAYS OFF)
     Dates: end: 201904
  2. VITAMIN E [Suspect]
     Active Substance: .ALPHA.-TOCOPHEROL
     Dosage: UNK
     Dates: end: 2019
  3. GABAPENTIN. [Suspect]
     Active Substance: GABAPENTIN
     Indication: NEURALGIA
     Dosage: UNK
     Dates: end: 2019
  4. VITAMIN D [COLECALCIFEROL] [Suspect]
     Active Substance: CHOLECALCIFEROL
     Dosage: UNK
     Dates: end: 2019

REACTIONS (8)
  - Product use in unapproved indication [Unknown]
  - Asthenia [Unknown]
  - Haemoglobin abnormal [Unknown]
  - Off label use [Unknown]
  - Urinary tract infection [Unknown]
  - Clostridium difficile colitis [Recovered/Resolved]
  - Blood test abnormal [Unknown]
  - White blood cell count increased [Unknown]

NARRATIVE: CASE EVENT DATE: 2019
